FAERS Safety Report 16820992 (Version 1)
Quarter: 2019Q3

REPORT INFORMATION
  Report Type: Spontaneous
  Country: US (occurrence: US)
  Receive Date: 20190918
  Receipt Date: 20190918
  Transmission Date: 20191005
  Serious: No
  Sender: FDA-Public Use
  Company Number: US-TEVA-2019-US-1108296

PATIENT

DRUGS (1)
  1. TADAFIL [Suspect]
     Active Substance: TADALAFIL

REACTIONS (2)
  - Dizziness [Unknown]
  - Dysuria [Unknown]
